FAERS Safety Report 7247047-8 (Version None)
Quarter: 2011Q1

REPORT INFORMATION
  Report Type: 
  Country: None (occurrence: None)
  Receive Date: 20110127
  Receipt Date: 20110118
  Transmission Date: 20110831
  Serious: Yes (Hospitalization)
  Sender: FDA-Public Use
  Company Number: US-ASTRAZENECA-2010SE45502

PATIENT
  Sex: Male

DRUGS (6)
  1. DEPAKOTE [Concomitant]
  2. LITHIUM [Concomitant]
  3. SEROQUEL [Suspect]
     Route: 048
     Dates: start: 20100921
  4. SEROQUEL [Suspect]
     Indication: BIPOLAR DISORDER
     Route: 048
  5. ATENOLOL [Concomitant]
  6. ANTIPSYCHOTICS [Concomitant]

REACTIONS (4)
  - PSYCHIATRIC DECOMPENSATION [None]
  - DRUG DOSE OMISSION [None]
  - TREATMENT NONCOMPLIANCE [None]
  - SEDATION [None]
